FAERS Safety Report 5137024-5 (Version None)
Quarter: 2006Q4

REPORT INFORMATION
  Report Type: 
  Country: None (occurrence: None)
  Receive Date: 20061030
  Receipt Date: 20061017
  Transmission Date: 20070319
  Serious: Yes (Other)
  Sender: FDA-Public Use
  Company Number: PHBS2006JP16305

PATIENT
  Sex: Male

DRUGS (2)
  1. DIOVAN [Suspect]
     Indication: HYPERTENSION
     Dosage: 80 MG/DAY
     Route: 048
     Dates: start: 20060901, end: 20061014
  2. LUPRAC [Suspect]
     Route: 048
     Dates: start: 20060901, end: 20061014

REACTIONS (1)
  - INTERSTITIAL LUNG DISEASE [None]
